FAERS Safety Report 15422104 (Version 3)
Quarter: 2019Q1

REPORT INFORMATION
  Report Type: Spontaneous
  Country: US (occurrence: US)
  Receive Date: 20180924
  Receipt Date: 20190305
  Transmission Date: 20190417
  Serious: Yes (Hospitalization, Other)
  Sender: FDA-Public Use
  Company Number: US-DSJP-DSU-2017-149342

PATIENT

DRUGS (2)
  1. BENICAR [Suspect]
     Active Substance: OLMESARTAN MEDOXOMIL
     Indication: BLOOD PRESSURE MANAGEMENT
     Dosage: 40 MG, QD
     Route: 048
     Dates: end: 20171119
  2. BENICAR [Suspect]
     Active Substance: OLMESARTAN MEDOXOMIL
     Dosage: 20 MG, QD
     Route: 048

REACTIONS (9)
  - Dizziness [Unknown]
  - Hiatus hernia [Unknown]
  - Acute kidney injury [Recovered/Resolved]
  - Constipation [Not Recovered/Not Resolved]
  - Weight decreased [Unknown]
  - Gastrooesophageal reflux disease [Not Recovered/Not Resolved]
  - Gastritis [Recovering/Resolving]
  - Diarrhoea [Recovered/Resolved]
  - Chronic kidney disease [Unknown]

NARRATIVE: CASE EVENT DATE: 200706
